FAERS Safety Report 6425818-5 (Version None)
Quarter: 2009Q4

REPORT INFORMATION
  Report Type: 
  Country: None (occurrence: None)
  Receive Date: 20091103
  Receipt Date: 20081117
  Transmission Date: 20100525
  Serious: No
  Sender: FDA-Public Use
  Company Number: US-ABBOTT-08P-163-0488127-00

PATIENT
  Sex: Female
  Weight: 65.83 kg

DRUGS (1)
  1. BIAXIN [Suspect]
     Indication: BACTERIAL INFECTION
     Dosage: UNKNOWN
     Route: 065
     Dates: start: 19930101, end: 19930101

REACTIONS (1)
  - RASH [None]
